FAERS Safety Report 10009520 (Version 2)
Quarter: 2014Q2

REPORT INFORMATION
  Report Type: Spontaneous
  Country: US (occurrence: US)
  Receive Date: 20140313
  Receipt Date: 20140603
  Transmission Date: 20141212
  Serious: No
  Sender: FDA-Public Use
  Company Number: US-009507513-1403USA005902

PATIENT
  Sex: Female
  Weight: 53.97 kg

DRUGS (3)
  1. DR. SCHOLL^S ONE STEP CORN REMOVERS [Suspect]
     Indication: HYPERKERATOSIS
     Dosage: UNK UNK, UNKNOWN
     Route: 061
     Dates: start: 20130725
  2. NORVASC [Concomitant]
     Indication: PRODUCT USED FOR UNKNOWN INDICATION
     Dosage: 5 MG, QD
     Route: 048
  3. ASPIRIN [Concomitant]
     Indication: PRODUCT USED FOR UNKNOWN INDICATION
     Dosage: 325 MG, QD
     Route: 048

REACTIONS (10)
  - Burns third degree [Recovering/Resolving]
  - Burns second degree [Recovering/Resolving]
  - Cellulitis [Recovered/Resolved]
  - Arthropathy [Unknown]
  - Exostosis [Unknown]
  - Foot deformity [Unknown]
  - Chemical injury [Recovering/Resolving]
  - Oedema [Recovering/Resolving]
  - Blister [Recovering/Resolving]
  - Erythema [Recovering/Resolving]
